FAERS Safety Report 5118650-6 (Version None)
Quarter: 2006Q3

REPORT INFORMATION
  Report Type: 
  Country: None (occurrence: None)
  Receive Date: 20060927
  Receipt Date: 20060925
  Transmission Date: 20061208
  Serious: Yes (Other)
  Sender: FDA-Public Use
  Company Number: 226286

PATIENT
  Age: 59 Year
  Sex: Male

DRUGS (3)
  1. RITUXAN [Suspect]
     Indication: WALDENSTROM'S MACROGLOBULINAEMIA
     Dosage: 375 MG/M2, 1/WEEK, INTRAVENOUS
     Route: 042
     Dates: start: 20060501, end: 20060608
  2. PANTOPRAZOLE SODIUM [Concomitant]
  3. HYDROCHLOROTHIAZIDE [Concomitant]

REACTIONS (3)
  - DISEASE PROGRESSION [None]
  - NO REACTION ON PREVIOUS EXPOSURE TO DRUG [None]
  - TRANSIENT ISCHAEMIC ATTACK [None]
